FAERS Safety Report 18367542 (Version 1)
Quarter: 2020Q4

REPORT INFORMATION
  Report Type: Spontaneous
  Country: US (occurrence: US)
  Receive Date: 20201009
  Receipt Date: 20201009
  Transmission Date: 20210114
  Serious: No
  Sender: FDA-Public Use
  Company Number: US-LEXICON PHARMACEUTICALS, INC-20-1606-00763

PATIENT
  Age: 71 Year
  Sex: Female

DRUGS (17)
  1. CELEXA [Concomitant]
     Active Substance: CITALOPRAM HYDROBROMIDE
  2. FERROUS SULFATE. [Concomitant]
     Active Substance: FERROUS SULFATE
  3. POTASSIUM CHLORIDE. [Concomitant]
     Active Substance: POTASSIUM CHLORIDE
  4. LOMOTIL [Concomitant]
     Active Substance: ATROPINE SULFATE\DIPHENOXYLATE HYDROCHLORIDE
  5. MULTIPLE VITAMIN [Concomitant]
     Active Substance: VITAMINS
  6. CALCIUM 500 + D [Suspect]
     Active Substance: CALCIUM\VITAMIN D
  7. QUESTRAN [Concomitant]
     Active Substance: CHOLESTYRAMINE
  8. TRIXAICIN [Concomitant]
     Active Substance: CAPSICUM OLEORESIN
  9. XALATAN [Concomitant]
     Active Substance: LATANOPROST
  10. COZAAR [Concomitant]
     Active Substance: LOSARTAN POTASSIUM
  11. IMODIUM A-D [Concomitant]
     Active Substance: LOPERAMIDE HYDROCHLORIDE
  12. NIACIN. [Concomitant]
     Active Substance: NIACIN
  13. ZOFRAN [Concomitant]
     Active Substance: ONDANSETRON HYDROCHLORIDE
  14. HYDROCHLOROTHIAZIDE. [Concomitant]
     Active Substance: HYDROCHLOROTHIAZIDE
  15. XERMELO [Suspect]
     Active Substance: TELOTRISTAT ETHYL
     Indication: CARCINOID SYNDROME
     Dates: start: 20171115
  16. ASPIRIN 81 [Concomitant]
     Active Substance: ASPIRIN
  17. AMLODIPINE BESYLATE. [Concomitant]
     Active Substance: AMLODIPINE BESYLATE

REACTIONS (2)
  - Hypersensitivity [Unknown]
  - Rash [Unknown]
